FAERS Safety Report 11575776 (Version 1)
Quarter: 2015Q3

REPORT INFORMATION
  Report Type: Spontaneous
  Country: US (occurrence: None)
  Receive Date: 20150929
  Receipt Date: 20150929
  Transmission Date: 20151125
  Serious: No
  Sender: FDA-Public Use
  Company Number: None

PATIENT

DRUGS (1)
  1. PHYTONADIONE INJECTABLE EMULSION USP NEONATAL CONCENTRATION [Suspect]
     Active Substance: PHYTONADIONE

REACTIONS (2)
  - Needle issue [None]
  - Injury associated with device [None]

NARRATIVE: CASE EVENT DATE: 20150825
